FAERS Safety Report 21507791 (Version 2)
Quarter: 2022Q4

REPORT INFORMATION
  Report Type: Report from Study
  Country: US (occurrence: US)
  Receive Date: 20221026
  Receipt Date: 20221213
  Transmission Date: 20230113
  Serious: Yes (Hospitalization)
  Sender: FDA-Public Use
  Company Number: US-ABBVIE-4167223

PATIENT
  Age: 84 Year
  Sex: Male

DRUGS (1)
  1. IMBRUVICA [Suspect]
     Active Substance: IBRUTINIB
     Indication: Mantle cell lymphoma
     Dosage: DRUG END DATE 2022
     Route: 048
     Dates: start: 20221005

REACTIONS (5)
  - Fall [Recovering/Resolving]
  - Rash [Not Recovered/Not Resolved]
  - Haemorrhage [Recovered/Resolved]
  - Unevaluable event [Unknown]
  - Blood iron decreased [Not Recovered/Not Resolved]

NARRATIVE: CASE EVENT DATE: 20221001
